FAERS Safety Report 10815124 (Version 1)
Quarter: 2015Q1

REPORT INFORMATION
  Report Type: Report from Study
  Country: DE (occurrence: DE)
  Receive Date: 20150218
  Receipt Date: 20150218
  Transmission Date: 20150721
  Serious: Yes (Death)
  Sender: FDA-Public Use
  Company Number: DE-BAYER-2015-018476

PATIENT
  Age: 56 Year
  Sex: Female
  Weight: 57 kg

DRUGS (5)
  1. ADEMPAS [Suspect]
     Active Substance: RIOCIGUAT
     Indication: PULMONARY HYPERTENSION
     Dosage: UNK
     Dates: start: 20140704
  2. SILDENAFIL. [Concomitant]
     Active Substance: SILDENAFIL
     Dosage: 60 MG/DAY
     Dates: start: 201311, end: 201404
  3. BOSENTAN [Concomitant]
     Active Substance: BOSENTAN\BOSENTAN MONOHYDRATE
     Dosage: 250 MG/DAY
     Dates: start: 200607
  4. ADEMPAS [Suspect]
     Active Substance: RIOCIGUAT
     Indication: PULMONARY HYPERTENSION
     Dosage: 6 MG/DAY
     Dates: start: 20140912
  5. PHENPROCOUMON [Concomitant]
     Active Substance: PHENPROCOUMON
     Route: 048

REACTIONS (3)
  - Decreased appetite [Fatal]
  - Dizziness [Recovered/Resolved]
  - Right ventricular failure [Fatal]

NARRATIVE: CASE EVENT DATE: 201409
